FAERS Safety Report 21512990 (Version 5)
Quarter: 2023Q1

REPORT INFORMATION
  Report Type: Report from Study
  Country: US (occurrence: US)
  Receive Date: 20221027
  Receipt Date: 20230201
  Transmission Date: 20230417
  Serious: Yes (Hospitalization, Other)
  Sender: FDA-Public Use
  Company Number: US-SERVIER-S22009688

PATIENT

DRUGS (52)
  1. VINCRISTINE [Suspect]
     Active Substance: VINCRISTINE
     Indication: Acute lymphocytic leukaemia
     Dosage: 2 MG, 1X/WEEK
     Route: 042
     Dates: start: 20220325, end: 20220325
  2. VINCRISTINE [Suspect]
     Active Substance: VINCRISTINE
     Dosage: 2 MG, 1X/WEEK
     Route: 042
     Dates: start: 20220401, end: 20220401
  3. VINCRISTINE [Suspect]
     Active Substance: VINCRISTINE
     Dosage: 2 MG, 1X/WEEK
     Route: 042
     Dates: start: 20220408, end: 20220408
  4. VINCRISTINE [Suspect]
     Active Substance: VINCRISTINE
     Dosage: 2 MG, 1X/WEEK
     Route: 042
     Dates: start: 20220415, end: 20220415
  5. VINCRISTINE [Suspect]
     Active Substance: VINCRISTINE
     Dosage: 2 MG, OTHER
     Route: 042
     Dates: start: 20220524, end: 20220524
  6. VINCRISTINE [Suspect]
     Active Substance: VINCRISTINE
     Dosage: 2 MG, OTHER
     Route: 042
     Dates: start: 20220601, end: 20220601
  7. VINCRISTINE [Suspect]
     Active Substance: VINCRISTINE
     Dosage: 2 MG, OTHER
     Route: 042
     Dates: start: 20020707, end: 20020707
  8. VINCRISTINE [Suspect]
     Active Substance: VINCRISTINE
     Dosage: 2 MG, OTHER
     Route: 042
     Dates: start: 20020714, end: 20020714
  9. VINCRISTINE [Suspect]
     Active Substance: VINCRISTINE
     Dosage: 2 MG, OTHER
     Route: 042
     Dates: start: 20220823, end: 20220823
  10. VINCRISTINE [Suspect]
     Active Substance: VINCRISTINE
     Dosage: 2 MG, OTHER
     Route: 042
     Dates: start: 20220902, end: 20220902
  11. VINCRISTINE [Suspect]
     Active Substance: VINCRISTINE
     Dosage: 2 MG, OTHER
     Route: 042
     Dates: start: 20220915, end: 20220915
  12. VINCRISTINE [Suspect]
     Active Substance: VINCRISTINE
     Dosage: 2 MG, PRN
     Route: 042
     Dates: start: 20221013, end: 20221013
  13. VINCRISTINE [Suspect]
     Active Substance: VINCRISTINE
     Dosage: 2 MG, PRN
     Route: 042
     Dates: start: 20221025, end: 20221025
  14. VINCRISTINE [Suspect]
     Active Substance: VINCRISTINE
     Dosage: 2 MG, PRN
     Route: 042
     Dates: start: 20221101, end: 20221101
  15. VINCRISTINE [Suspect]
     Active Substance: VINCRISTINE
     Dosage: 2 MG, PRN
     Route: 042
     Dates: start: 20221108, end: 20221108
  16. METHOTREXATE [Suspect]
     Active Substance: METHOTREXATE
     Indication: Acute lymphocytic leukaemia
     Dosage: 15 MG, OTHER
     Route: 037
     Dates: start: 20220401, end: 20220401
  17. METHOTREXATE [Suspect]
     Active Substance: METHOTREXATE
     Dosage: 15 MG, PRN
     Route: 037
     Dates: start: 20220421, end: 20220421
  18. METHOTREXATE [Suspect]
     Active Substance: METHOTREXATE
     Dosage: 15 MG, PRN
     Route: 037
     Dates: start: 20220510, end: 20220510
  19. METHOTREXATE [Suspect]
     Active Substance: METHOTREXATE
     Dosage: 15 MG, PRN
     Route: 037
     Dates: start: 20220517, end: 20220517
  20. METHOTREXATE [Suspect]
     Active Substance: METHOTREXATE
     Dosage: 15 MG, OTHER
     Route: 037
     Dates: start: 20220601, end: 20220601
  21. METHOTREXATE [Suspect]
     Active Substance: METHOTREXATE
     Dosage: 15 MG, OTHER
     Route: 037
     Dates: start: 20220607, end: 20220607
  22. METHOTREXATE [Suspect]
     Active Substance: METHOTREXATE
     Dosage: 207 MG, OTHER
     Route: 042
     Dates: start: 20220823, end: 20220823
  23. METHOTREXATE [Suspect]
     Active Substance: METHOTREXATE
     Dosage: 15 MG, OTHER
     Route: 037
     Dates: start: 20220823, end: 20220823
  24. METHOTREXATE [Suspect]
     Active Substance: METHOTREXATE
     Dosage: 207 MG, OTHER
     Route: 042
     Dates: start: 20220915, end: 20220915
  25. METHOTREXATE [Suspect]
     Active Substance: METHOTREXATE
     Dosage: 15 MG, PRN
     Route: 037
     Dates: start: 20220920, end: 20220920
  26. METHOTREXATE [Suspect]
     Active Substance: METHOTREXATE
     Dosage: 15 MG, PRN
     Route: 037
     Dates: start: 20221025, end: 20221025
  27. METHOTREXATE [Suspect]
     Active Substance: METHOTREXATE
     Dosage: 15 MG, 1X/WEEK
     Route: 037
     Dates: start: 20221129, end: 20221129
  28. METHOTREXATE [Suspect]
     Active Substance: METHOTREXATE
     Dosage: 15 MG, PRN
     Route: 037
     Dates: start: 20221206, end: 20221206
  29. DEXAMETHASONE [Concomitant]
     Active Substance: DEXAMETHASONE
     Indication: Acute lymphocytic leukaemia
     Dosage: 10 MG, BID
     Route: 048
     Dates: start: 20220325, end: 20220328
  30. DEXAMETHASONE [Concomitant]
     Active Substance: DEXAMETHASONE
     Dosage: 12 MG, PRN
     Route: 048
     Dates: start: 20220510, end: 20220510
  31. DEXAMETHASONE [Concomitant]
     Active Substance: DEXAMETHASONE
     Dosage: 12 MG, OTHER
     Route: 048
     Dates: start: 20220623, end: 20220623
  32. DEXAMETHASONE [Concomitant]
     Active Substance: DEXAMETHASONE
     Dosage: 12 MG, OTHER
     Route: 048
     Dates: start: 20220915, end: 20220915
  33. DEXAMETHASONE [Concomitant]
     Active Substance: DEXAMETHASONE
     Dosage: 12 MG, PRN
     Route: 048
     Dates: start: 20221013, end: 20221013
  34. DEXAMETHASONE [Concomitant]
     Active Substance: DEXAMETHASONE
     Dosage: 10 MG, BID
     Route: 048
     Dates: start: 20221025, end: 20221101
  35. DEXAMETHASONE [Concomitant]
     Active Substance: DEXAMETHASONE
     Dosage: 12 MG, PRN
     Route: 048
     Dates: start: 20221229, end: 20221229
  36. DAUNORUBICIN [Concomitant]
     Active Substance: DAUNORUBICIN
     Indication: Acute lymphocytic leukaemia
     Dosage: 55 MG, 1X/WEEK
     Route: 042
     Dates: start: 20220325, end: 20220325
  37. DAUNORUBICIN [Concomitant]
     Active Substance: DAUNORUBICIN
     Dosage: 55 MG, PRN
     Route: 042
     Dates: start: 20220415, end: 20220415
  38. CYTARABINE [Concomitant]
     Active Substance: CYTARABINE
     Indication: Acute lymphocytic leukaemia
     Dosage: 50 MG, OTHER
     Route: 037
     Dates: start: 20220324, end: 20220324
  39. CYTARABINE [Concomitant]
     Active Substance: CYTARABINE
     Dosage: 158 MG, PRN
     Route: 058
     Dates: start: 20220510, end: 20220510
  40. CYTARABINE [Concomitant]
     Active Substance: CYTARABINE
     Dosage: 158 MG, PRN
     Route: 058
     Dates: start: 20220517, end: 20220517
  41. CYTARABINE [Concomitant]
     Active Substance: CYTARABINE
     Dosage: 158 MG, OTHER
     Route: 058
     Dates: start: 20220623, end: 20220623
  42. CYTARABINE [Concomitant]
     Active Substance: CYTARABINE
     Dosage: 158 MG, OTHER
     Route: 058
     Dates: start: 20220630, end: 20220630
  43. CYTARABINE [Concomitant]
     Active Substance: CYTARABINE
     Dosage: 153 MG, PRN
     Route: 042
     Dates: start: 20221229, end: 20221229
  44. CYCLOPHOSPHAMIDE [Concomitant]
     Active Substance: CYCLOPHOSPHAMIDE
     Indication: Acute lymphocytic leukaemia
     Dosage: 2110 MG, PRN
     Route: 042
     Dates: start: 20220510, end: 20220510
  45. CYCLOPHOSPHAMIDE [Concomitant]
     Active Substance: CYCLOPHOSPHAMIDE
     Dosage: 2110 MG, OTHER
     Route: 042
     Dates: start: 20220623, end: 20220623
  46. CYCLOPHOSPHAMIDE [Concomitant]
     Active Substance: CYCLOPHOSPHAMIDE
     Dosage: 2040 MG, PRN
     Route: 042
     Dates: start: 20221229, end: 20221229
  47. MERCAPTOPURINE [Concomitant]
     Active Substance: MERCAPTOPURINE
     Indication: Acute lymphocytic leukaemia
     Dosage: 125 MG, QD
     Route: 048
     Dates: start: 20220510, end: 20220726
  48. DOXORUBICIN HYDROCHLORIDE [Concomitant]
     Active Substance: DOXORUBICIN HYDROCHLORIDE
     Indication: Acute lymphocytic leukaemia
     Dosage: 51 MG, PRN
     Route: 042
     Dates: start: 20221025, end: 20221025
  49. DOXORUBICIN HYDROCHLORIDE [Concomitant]
     Active Substance: DOXORUBICIN HYDROCHLORIDE
     Dosage: 51 MG, PRN
     Route: 042
     Dates: start: 20221101, end: 20221101
  50. DOXORUBICIN HYDROCHLORIDE [Concomitant]
     Active Substance: DOXORUBICIN HYDROCHLORIDE
     Dosage: 51 MG, PRN
     Route: 042
     Dates: start: 20221108, end: 20221108
  51. LORAZEPAM [Concomitant]
     Active Substance: LORAZEPAM
     Indication: Anxiety
     Dosage: 0.5 MG, PRN
     Route: 048
     Dates: start: 20220322
  52. LEVOCARNITINE [Concomitant]
     Active Substance: LEVOCARNITINE
     Indication: Supportive care
     Dosage: 660 MG, TID
     Route: 048
     Dates: start: 20220327

REACTIONS (2)
  - Thrombocytopenia [Recovering/Resolving]
  - Drug hypersensitivity [Recovered/Resolved]

NARRATIVE: CASE EVENT DATE: 20220927
